FAERS Safety Report 22173497 (Version 1)
Quarter: 2023Q2

REPORT INFORMATION
  Report Type: Spontaneous
  Country: EG (occurrence: EG)
  Receive Date: 20230404
  Receipt Date: 20230404
  Transmission Date: 20230721
  Serious: Yes (Life-Threatening)
  Sender: FDA-Public Use
  Company Number: EG-PFIZER INC-PV202300060709

PATIENT
  Age: 79 Year
  Sex: Male
  Weight: 79 kg

DRUGS (16)
  1. ZYVOX [Suspect]
     Active Substance: LINEZOLID
     Dosage: 300 ML, 2X/DAY
     Dates: start: 20230125, end: 20230205
  2. FEBUXOSTAT [Concomitant]
     Active Substance: FEBUXOSTAT
     Dosage: UNK, 1X/DAY
     Route: 048
  3. ACETYLCYSTEINE [Concomitant]
     Active Substance: ACETYLCYSTEINE
     Dosage: 200 MG, 2X/DAY
     Route: 048
  4. IPRATROPIUM [Concomitant]
     Active Substance: IPRATROPIUM
     Indication: Hypothyroidism
     Dosage: EVERY 6 HOURS
  5. IPRATROPIUM [Concomitant]
     Active Substance: IPRATROPIUM
     Indication: Multiple sclerosis
  6. PULMICORT TURBUHALER [Concomitant]
     Active Substance: BUDESONIDE
     Dosage: EVERY 6 HOURS
  7. KAPRON [TRANEXAMIC ACID] [Concomitant]
     Dosage: WAS TAKEN ONLY ONCE UPON A TIME
  8. ENOXAPARIN SODIUM [Concomitant]
     Active Substance: ENOXAPARIN SODIUM
     Dosage: 40 MG / 0.4 ML
  9. NORVASC [Concomitant]
     Active Substance: AMLODIPINE BESYLATE
     Route: 048
  10. NITRODERM [Concomitant]
     Active Substance: NITROGLYCERIN
     Route: 062
  11. SUPPORTAN [Concomitant]
  12. CONTROLOC [Concomitant]
     Active Substance: PANTOPRAZOLE SODIUM
     Route: 048
  13. MEROPENEM [Concomitant]
     Active Substance: MEROPENEM
     Dosage: 1 G, 3X/DAY (EVERY 8 HOURS)
     Route: 042
  14. PENTAMOL [PARACETAMOL] [Concomitant]
     Dosage: EVERY 8 HOURS
     Route: 017
  15. POTASSIUM [Concomitant]
     Active Substance: POTASSIUM
  16. MAGNESIUM [Concomitant]
     Active Substance: MAGNESIUM

REACTIONS (1)
  - Thrombocytopenia [Recovering/Resolving]

NARRATIVE: CASE EVENT DATE: 20230204
